FAERS Safety Report 4901015-7 (Version None)
Quarter: 2006Q1

REPORT INFORMATION
  Report Type: 
  Country: None (occurrence: None)
  Receive Date: 20060203
  Receipt Date: 20051020
  Transmission Date: 20060701
  Serious: Yes (Death, Other)
  Sender: FDA-Public Use
  Company Number: US-MERCK-0602USA00361

PATIENT

DRUGS (1)
  1. VIOXX [Suspect]
     Route: 048
     Dates: end: 20040901

REACTIONS (6)
  - CEREBROVASCULAR ACCIDENT [None]
  - DEATH [None]
  - HEPATIC TRAUMA [None]
  - MYOCARDIAL INFARCTION [None]
  - PULMONARY EMBOLISM [None]
  - RENAL INJURY [None]
